FAERS Safety Report 8176450-7 (Version None)
Quarter: 2012Q1

REPORT INFORMATION
  Report Type: 
  Country: None (occurrence: None)
  Receive Date: 20120301
  Receipt Date: 20111021
  Transmission Date: 20120608
  Serious: Yes (Hospitalization)
  Sender: FDA-Public Use
  Company Number: US-BAYER-2011-032885

PATIENT
  Age: 25 Year
  Sex: Female
  Weight: 56.689 kg

DRUGS (6)
  1. YAZ [Suspect]
  2. PENTASA [Concomitant]
     Indication: CROHN'S DISEASE
     Dosage: 500 MG, UNK
  3. MULTI-VITAMIN [Concomitant]
     Dosage: DAILY
  4. DROSPIRENONE AND ETHINYL ESTRADIOL [Suspect]
     Dosage: UNK
     Route: 048
     Dates: start: 20000101, end: 20090101
  5. DROSPIRENONE AND ETHINYL ESTRADIOL [Suspect]
     Dosage: UNK
     Dates: start: 20081028, end: 20091128
  6. YASMIN [Suspect]
     Dosage: UNK
     Route: 048
     Dates: start: 20000101, end: 20090101

REACTIONS (5)
  - TRANSIENT ISCHAEMIC ATTACK [None]
  - HYPOAESTHESIA [None]
  - PARAESTHESIA [None]
  - PAIN [None]
  - INJURY [None]
